FAERS Safety Report 13069216 (Version 1)
Quarter: 2016Q4

REPORT INFORMATION
  Report Type: Spontaneous
  Country: US (occurrence: US)
  Receive Date: 20161228
  Receipt Date: 20161228
  Transmission Date: 20170207
  Serious: No
  Sender: FDA-Public Use
  Company Number: US-PFIZER INC-2016596310

PATIENT

DRUGS (2)
  1. CELEBREX [Suspect]
     Active Substance: CELECOXIB
     Indication: PAIN
     Dosage: ONCE A DAY
  2. CELEBREX [Suspect]
     Active Substance: CELECOXIB
     Dosage: TWICE A DAY

REACTIONS (3)
  - Burning sensation [Unknown]
  - Contraindicated product administered [Unknown]
  - Drug ineffective [Unknown]
